FAERS Safety Report 14298914 (Version 1)
Quarter: 2017Q4

REPORT INFORMATION
  Report Type: Spontaneous
  Country: US (occurrence: US)
  Receive Date: 20171216
  Receipt Date: 20171216
  Transmission Date: 20180321
  Serious: No
  Sender: FDA-Public Use
  Company Number: None

PATIENT
  Age: 33 Year
  Weight: 92.7 kg

DRUGS (5)
  1. ATOMOXETINE. [Concomitant]
     Active Substance: ATOMOXETINE HYDROCHLORIDE
  2. ATIVAN [Concomitant]
     Active Substance: LORAZEPAM
  3. ZOLPIDEM [Concomitant]
     Active Substance: ZOLPIDEM\ZOLPIDEM TARTRATE
  4. BUPROPION SR 200MG TABLETS (12 HR) [Suspect]
     Active Substance: BUPROPION
     Indication: DEPRESSION
     Dosage: ?          QUANTITY:60 TABLET(S);?
     Route: 048
     Dates: start: 20171211, end: 20171214
  5. LAMICTAL [Concomitant]
     Active Substance: LAMOTRIGINE

REACTIONS (6)
  - Product quality issue [None]
  - Vomiting [None]
  - Drug ineffective [None]
  - Depression [None]
  - Nausea [None]
  - Suicidal ideation [None]

NARRATIVE: CASE EVENT DATE: 20171214
